FAERS Safety Report 17267204 (Version 2)
Quarter: 2020Q1

REPORT INFORMATION
  Report Type: Spontaneous
  Country: ES (occurrence: ES)
  Receive Date: 20200114
  Receipt Date: 20200210
  Transmission Date: 20200409
  Serious: Yes (Hospitalization)
  Sender: FDA-Public Use
  Company Number: ES-SA-2020SA007606

PATIENT
  Sex: Female
  Weight: 84 kg

DRUGS (1)
  1. LANTUS [Suspect]
     Active Substance: INSULIN GLARGINE
     Indication: TYPE 2 DIABETES MELLITUS
     Dosage: UNK
     Route: 058

REACTIONS (5)
  - Arthropathy [Unknown]
  - Osteoarthritis [Unknown]
  - Blood glucose increased [Recovered/Resolved]
  - Coordination abnormal [Recovering/Resolving]
  - Knee operation [Recovering/Resolving]
